FAERS Safety Report 17305552 (Version 2)
Quarter: 2023Q1

REPORT INFORMATION
  Report Type: Spontaneous
  Country: IT (occurrence: IT)
  Receive Date: 20200123
  Receipt Date: 20230125
  Transmission Date: 20230418
  Serious: Yes (Other)
  Sender: FDA-Public Use
  Company Number: IT-002147023-PHHY2019IT203174

PATIENT
  Age: 12 Month
  Sex: Male

DRUGS (6)
  1. TOPOTECAN [Suspect]
     Active Substance: TOPOTECAN HYDROCHLORIDE
     Dosage: QW 1 INJECTION 1 WEEK AFTER IA
     Route: 031
  2. TOPOTECAN [Suspect]
     Active Substance: TOPOTECAN HYDROCHLORIDE
     Dosage: Q3W 0.3-2 MG, Q3W
     Route: 013
  3. CARBOPLATIN [Suspect]
     Active Substance: CARBOPLATIN
     Indication: Retinoblastoma
     Dosage: 10-30 UG, 1 INJECTION 1 WEEK AFTER IA
     Route: 013
  4. CARBOPLATIN [Suspect]
     Active Substance: CARBOPLATIN
     Dosage: 3-9 INFUSIONS EVERY 3 WEEKS
     Route: 065
  5. MELPHALAN [Suspect]
     Active Substance: MELPHALAN
     Indication: Retinoblastoma
     Dosage: 2.5 -5 MG, 3-9 INFUSIONS EVERY 3 WEEKS
     Route: 013
  6. MELPHALAN [Suspect]
     Active Substance: MELPHALAN
     Dosage: 10-30 UG, 1 INJECTION 1 WEEK AFTER IA
     Route: 031

REACTIONS (2)
  - Retinal degeneration [Unknown]
  - Product use in unapproved indication [Unknown]
